FAERS Safety Report 6500804-5 (Version None)
Quarter: 2009Q4

REPORT INFORMATION
  Report Type: 
  Country: None (occurrence: None)
  Receive Date: 20091216
  Receipt Date: 20090302
  Transmission Date: 20100525
  Serious: No
  Sender: FDA-Public Use
  Company Number: A0771084A

PATIENT
  Age: 38 Year
  Sex: Female

DRUGS (1)
  1. COMMIT [Suspect]
     Dates: start: 20090301, end: 20090301

REACTIONS (3)
  - GLOSSODYNIA [None]
  - SENSORY DISTURBANCE [None]
  - STOMATITIS [None]
